FAERS Safety Report 19448231 (Version 2)
Quarter: 2022Q1

REPORT INFORMATION
  Report Type: Spontaneous
  Country: US (occurrence: US)
  Receive Date: 20210622
  Receipt Date: 20220324
  Transmission Date: 20220423
  Serious: Yes (Other)
  Sender: FDA-Public Use
  Company Number: US-MYLANLABS-2021M1036503

PATIENT
  Age: 65 Year
  Sex: Female
  Weight: 71.21 kg

DRUGS (4)
  1. VALSARTAN [Suspect]
     Active Substance: VALSARTAN
     Indication: Hypertension
     Dosage: 80 MILLIGRAM
     Dates: start: 20191117, end: 202004
  2. VALSARTAN [Suspect]
     Active Substance: VALSARTAN
     Indication: Hypertension
     Dosage: 80 MILLIGRAM
     Dates: start: 20180502, end: 2020
  3. VALSARTAN [Suspect]
     Active Substance: VALSARTAN
     Dosage: UNK
  4. RABEPRAZOLE [Concomitant]
     Active Substance: RABEPRAZOLE
     Indication: Gastrooesophageal reflux disease
     Dosage: 20 MILLIGRAM
     Dates: start: 2014, end: 2019

REACTIONS (2)
  - Rectal cancer stage III [Unknown]
  - Anal squamous cell carcinoma [Unknown]

NARRATIVE: CASE EVENT DATE: 20200401
